FAERS Safety Report 5646529-X (Version None)
Quarter: 2008Q1

REPORT INFORMATION
  Report Type: 
  Country: None (occurrence: None)
  Receive Date: 20080303
  Receipt Date: 20080225
  Transmission Date: 20080703
  Serious: Yes (Other)
  Sender: FDA-Public Use
  Company Number: PHNU2007DE04035

PATIENT
  Age: 58 Year
  Sex: Male

DRUGS (5)
  1. DIOVAN [Suspect]
     Indication: HYPERTENSION
     Dosage: 40 MG, QD
     Route: 048
     Dates: start: 20050101
  2. DIOVAN [Suspect]
     Dosage: 80 MG, QD
     Route: 048
     Dates: start: 20071025
  3. CARVEDILOL [Suspect]
  4. SIMVASTATIN [Concomitant]
     Dosage: 1 DF, QD
     Route: 048
  5. CLOPIDOGREL [Concomitant]
     Dosage: 1 DF/DAY
     Route: 048

REACTIONS (4)
  - ARRHYTHMIA [None]
  - CHEST DISCOMFORT [None]
  - EAR DISCOMFORT [None]
  - EXTRASYSTOLES [None]
